FAERS Safety Report 16563104 (Version 2)
Quarter: 2019Q3

REPORT INFORMATION
  Report Type: Spontaneous
  Country: US (occurrence: US)
  Receive Date: 20190711
  Receipt Date: 20190812
  Transmission Date: 20191004
  Serious: No
  Sender: FDA-Public Use
  Company Number: US-TRIS PHARMA, INC.-19US000083

PATIENT

DRUGS (1)
  1. DYANAVEL XR [Suspect]
     Active Substance: AMPHETAMINE
     Indication: PRODUCT USED FOR UNKNOWN INDICATION
     Dosage: 3 MILLILITER, QD
     Route: 048

REACTIONS (5)
  - Wrong technique in product usage process [Unknown]
  - Product dose omission [Unknown]
  - Underdose [Unknown]
  - Abnormal behaviour [Unknown]
  - Product physical issue [Unknown]
